FAERS Safety Report 8383768-1 (Version None)
Quarter: 2012Q2

REPORT INFORMATION
  Report Type: 
  Country: None (occurrence: None)
  Receive Date: 20120524
  Receipt Date: 20120515
  Transmission Date: 20120825
  Serious: Yes (Other)
  Sender: FDA-Public Use
  Company Number: US-ASTRAZENECA-2012SE31097

PATIENT
  Sex: Female

DRUGS (3)
  1. PPIS [Concomitant]
     Indication: GASTROOESOPHAGEAL REFLUX DISEASE
  2. SUPPLEMENTS [Concomitant]
  3. NEXIUM [Suspect]
     Indication: GASTROOESOPHAGEAL REFLUX DISEASE
     Route: 048

REACTIONS (9)
  - FEELING OF DESPAIR [None]
  - BLOOD MAGNESIUM DECREASED [None]
  - WEIGHT DECREASED [None]
  - VOMITING [None]
  - SUICIDAL IDEATION [None]
  - ANXIETY [None]
  - DECREASED APPETITE [None]
  - DEPRESSION [None]
  - NAUSEA [None]
